FAERS Safety Report 26066498 (Version 1)
Quarter: 2025Q4

REPORT INFORMATION
  Report Type: Spontaneous
  Country: US (occurrence: US)
  Receive Date: 20251119
  Receipt Date: 20251119
  Transmission Date: 20260117
  Serious: No
  Sender: PFIZER
  Company Number: US-PFIZER INC-202500224941

PATIENT
  Sex: Male

DRUGS (2)
  1. NURTEC ODT [Interacting]
     Active Substance: RIMEGEPANT SULFATE
     Indication: Migraine
  2. EMGALITY [Interacting]
     Active Substance: GALCANEZUMAB-GNLM
     Indication: Migraine

REACTIONS (2)
  - Drug ineffective [Unknown]
  - Drug interaction [Unknown]
